FAERS Safety Report 6604271-2 (Version None)
Quarter: 2010Q1

REPORT INFORMATION
  Report Type: 
  Country: None (occurrence: None)
  Receive Date: 20100226
  Receipt Date: 20090730
  Transmission Date: 20100710
  Serious: No
  Sender: FDA-Public Use
  Company Number: A0799682A

PATIENT
  Age: 56 Year
  Sex: Male

DRUGS (2)
  1. LAMICTAL CD [Suspect]
     Dosage: 2TAB TWICE PER DAY
     Route: 048
  2. NO CONCURRENT MEDICATION [Concomitant]

REACTIONS (2)
  - DISCOMFORT [None]
  - RASH PAPULAR [None]
